APPROVED DRUG PRODUCT: KANAMYCIN SULFATE
Active Ingredient: KANAMYCIN SULFATE
Strength: EQ 1GM BASE/3ML
Dosage Form/Route: INJECTABLE;INJECTION
Application: A065111 | Product #002
Applicant: FRESENIUS KABI USA LLC
Approved: Dec 17, 2002 | RLD: No | RS: No | Type: DISCN